FAERS Safety Report 25409102 (Version 1)
Quarter: 2025Q2

REPORT INFORMATION
  Report Type: Spontaneous
  Country: JP (occurrence: JP)
  Receive Date: 20250607
  Receipt Date: 20250607
  Transmission Date: 20250717
  Serious: Yes (Hospitalization, Other)
  Sender: AMGEN
  Company Number: JP-AMGEN-JPNSP2025109039

PATIENT
  Age: 83 Year
  Sex: Male

DRUGS (2)
  1. BLINCYTO [Suspect]
     Active Substance: BLINATUMOMAB
     Indication: Philadelphia positive acute lymphocytic leukaemia
     Dosage: 5 MICROGRAM, QD
     Route: 040
     Dates: start: 20211027
  2. BLINCYTO [Suspect]
     Active Substance: BLINATUMOMAB
     Route: 040

REACTIONS (7)
  - Malaise [Recovering/Resolving]
  - Febrile neutropenia [Unknown]
  - Performance status decreased [Recovering/Resolving]
  - Cytokine release syndrome [Recovering/Resolving]
  - Agraphia [Unknown]
  - Dysgraphia [Unknown]
  - Neurological symptom [Recovering/Resolving]

NARRATIVE: CASE EVENT DATE: 20211001
